FAERS Safety Report 4837542-0 (Version None)
Quarter: 2005Q4

REPORT INFORMATION
  Report Type: 
  Country: None (occurrence: None)
  Receive Date: 20051128
  Receipt Date: 20050926
  Transmission Date: 20060501
  Serious: Yes (Other)
  Sender: FDA-Public Use
  Company Number: PHBS2005JP14346

PATIENT
  Age: 30 Year
  Sex: Female
  Weight: 45 kg

DRUGS (6)
  1. PROGRAF [Concomitant]
     Indication: RENAL TRANSPLANT
     Dosage: 2.5 MG/DAY
     Route: 042
     Dates: start: 20050914
  2. SOLU-MEDROL [Concomitant]
     Indication: RENAL TRANSPLANT
     Route: 042
     Dates: start: 20050914
  3. MEPTIN [Concomitant]
  4. NEOPHYLLIN [Concomitant]
     Route: 042
  5. SIMULECT [Suspect]
     Indication: RENAL TRANSPLANT
     Dosage: 20 MG, ONCE/SINGLE
     Dates: start: 20050914, end: 20050914
  6. PREDNISOLONE [Concomitant]
     Indication: RENAL TRANSPLANT
     Dates: start: 20050914

REACTIONS (6)
  - ASTHMA [None]
  - COUGH [None]
  - DYSPNOEA [None]
  - OXYGEN SATURATION DECREASED [None]
  - PRODUCTIVE COUGH [None]
  - WHEEZING [None]
